FAERS Safety Report 22116905 (Version 2)
Quarter: 2023Q1

REPORT INFORMATION
  Report Type: Report from Study
  Country: CA (occurrence: CA)
  Receive Date: 20230320
  Receipt Date: 20230327
  Transmission Date: 20230417
  Serious: No
  Sender: FDA-Public Use
  Company Number: CA-BAUSCH-BL-2020-033235

PATIENT
  Sex: Female
  Weight: 98.639 kg

DRUGS (16)
  1. CONTRAVE [Suspect]
     Active Substance: BUPROPION HYDROCHLORIDE\NALTREXONE HYDROCHLORIDE
     Indication: Weight control
     Dosage: 90 MG/8 MG; 1 TABLET EVERY MORNING
     Route: 048
     Dates: start: 20201021, end: 20201027
  2. CONTRAVE [Suspect]
     Active Substance: BUPROPION HYDROCHLORIDE\NALTREXONE HYDROCHLORIDE
     Dosage: 90 MG/8 MG; 1 TABLET EVERY MORNING, 1 TABLET EVERY EVENING
     Route: 048
     Dates: start: 20201028, end: 20201103
  3. CONTRAVE [Suspect]
     Active Substance: BUPROPION HYDROCHLORIDE\NALTREXONE HYDROCHLORIDE
     Dosage: 90 MG/8 MG; 2 TABLET EVERY MORNING, 1 TABLET EVERY EVENING
     Route: 048
     Dates: start: 20201104, end: 20201110
  4. CONTRAVE [Suspect]
     Active Substance: BUPROPION HYDROCHLORIDE\NALTREXONE HYDROCHLORIDE
     Dosage: 90 MG/8 MG; 2 TABLET EVERY MORNING, 2 TABLET EVERY EVENING
     Route: 048
     Dates: start: 20201111, end: 20211119
  5. CONTRAVE [Suspect]
     Active Substance: BUPROPION HYDROCHLORIDE\NALTREXONE HYDROCHLORIDE
     Dosage: 90/8 MG, 3 TAB IN MORNING, 2 TAB IN EVENING
     Route: 048
     Dates: start: 20211120, end: 20211122
  6. CONTRAVE [Suspect]
     Active Substance: BUPROPION HYDROCHLORIDE\NALTREXONE HYDROCHLORIDE
     Dosage: 90 MG/8 MG; 2 TABLET EVERY MORNING, 2 TABLET EVERY EVENING
     Route: 048
     Dates: start: 20211123
  7. CONTRAVE [Suspect]
     Active Substance: BUPROPION HYDROCHLORIDE\NALTREXONE HYDROCHLORIDE
     Dosage: 90 MG/8 MG; 2 TABLET EVERY MORNING, 1 TABLET EVERY EVENING
     Route: 048
     Dates: start: 20230113
  8. CONTRAVE [Suspect]
     Active Substance: BUPROPION HYDROCHLORIDE\NALTREXONE HYDROCHLORIDE
     Dosage: 90 MG/8 MG, 1 TABLET EVERY MORNING, 1 TABLET EVERY EVENING
     Route: 048
     Dates: start: 20230215
  9. CONTRAVE [Suspect]
     Active Substance: BUPROPION HYDROCHLORIDE\NALTREXONE HYDROCHLORIDE
     Dosage: 90 MG/8 MG, 2 TABLET EVERY MORNING, 2 TABLET EVERY EVENING
     Route: 048
     Dates: start: 20230220
  10. TRIAZIDE [TRICHLORMETHIAZIDE] [Concomitant]
     Indication: Hypertension
     Dosage: 1 IN 1 D
     Route: 048
  11. SYNTHROID [Concomitant]
     Active Substance: LEVOTHYROXINE SODIUM
     Indication: Hypothyroidism
     Dosage: 0.015 MG,1 IN 1 D
     Route: 048
     Dates: start: 20210620
  12. PREGABALIN [Concomitant]
     Active Substance: PREGABALIN
     Indication: Nerve compression
     Dosage: 1 IN 1 D
     Route: 048
  13. CELEBREX [Concomitant]
     Active Substance: CELECOXIB
     Indication: Pain
     Dosage: 1 IN 1 D
     Route: 048
  14. TRAZODONE [Concomitant]
     Active Substance: TRAZODONE HYDROCHLORIDE
     Indication: Sleep disorder
     Dosage: 1 IN 1 D
     Route: 048
  15. SYMBICORT [Concomitant]
     Active Substance: BUDESONIDE\FORMOTEROL FUMARATE DIHYDRATE
     Indication: Asthma
     Dosage: UNK
  16. MONTELUKAST [Concomitant]
     Active Substance: MONTELUKAST SODIUM
     Indication: Asthma
     Dosage: UNK

REACTIONS (25)
  - Knee deformity [Unknown]
  - Food craving [Unknown]
  - Sleep apnoea syndrome [Recovering/Resolving]
  - Hunger [Unknown]
  - Weight increased [Unknown]
  - Abdominal distension [Recovering/Resolving]
  - Thyroid hormones increased [Unknown]
  - Crying [Recovered/Resolved]
  - Discomfort [Unknown]
  - Arthralgia [Not Recovered/Not Resolved]
  - Energy increased [Unknown]
  - Stress [Recovered/Resolved]
  - Condition aggravated [Recovered/Resolved]
  - Feeling abnormal [Unknown]
  - Dizziness [Recovered/Resolved]
  - Tremor [Not Recovered/Not Resolved]
  - Abdominal pain [Recovering/Resolving]
  - Constipation [Recovering/Resolving]
  - Abdominal pain upper [Unknown]
  - Headache [Not Recovered/Not Resolved]
  - Alopecia [Not Recovered/Not Resolved]
  - Therapeutic response unexpected [Unknown]
  - Product dose omission in error [Unknown]
  - Inappropriate schedule of product administration [Unknown]
  - Intentional product use issue [Unknown]

NARRATIVE: CASE EVENT DATE: 20200101
